FAERS Safety Report 6648368-X (Version None)
Quarter: 2010Q1

REPORT INFORMATION
  Report Type: 
  Country: None (occurrence: None)
  Receive Date: 20100324
  Receipt Date: 20100313
  Transmission Date: 20100710
  Serious: Yes (Other)
  Sender: FDA-Public Use
  Company Number: BR-BAYER-200921859LA

PATIENT
  Age: 44 Year
  Sex: Female

DRUGS (8)
  1. BETAFERON [Suspect]
     Indication: RELAPSING-REMITTING MULTIPLE SCLEROSIS
     Dosage: BETAJECT
     Route: 058
     Dates: start: 20060101, end: 20091201
  2. GUTALAX [Concomitant]
     Indication: CONSTIPATION
     Dosage: PER DAY
     Route: 048
     Dates: start: 20020101
  3. CLOMIPRAMINE HCL [Concomitant]
     Indication: DEPRESSION
     Route: 048
     Dates: start: 19990101
  4. AMITRIPTYLINE HCL [Concomitant]
     Indication: DEPRESSION
     Route: 048
     Dates: start: 19990101
  5. AMITRIPTYLINE HCL [Concomitant]
     Dosage: TOTAL DAILY DOSE: 4 DF
     Route: 048
     Dates: start: 20010101
  6. MITROXANTRONE [Concomitant]
     Indication: STEM CELL TRANSPLANT
     Route: 042
     Dates: start: 20080101, end: 20090601
  7. COPROMAZILI [Concomitant]
     Indication: DEPRESSION
     Dosage: TOTAL DAILY DOSE: 1 DF
     Route: 048
     Dates: start: 20010101
  8. VALERIANA [Concomitant]
     Indication: DEPRESSION
     Dosage: TOTAL DAILY DOSE: 2 DF
     Route: 048
     Dates: start: 20091001

REACTIONS (12)
  - BLINDNESS [None]
  - COORDINATION ABNORMAL [None]
  - DRY SKIN [None]
  - FATIGUE [None]
  - GAIT DISTURBANCE [None]
  - HYPOAESTHESIA [None]
  - INSOMNIA [None]
  - MULTIPLE SCLEROSIS [None]
  - RELAPSING-REMITTING MULTIPLE SCLEROSIS [None]
  - SKIN EXFOLIATION [None]
  - SPEECH DISORDER [None]
  - VISUAL IMPAIRMENT [None]
